FAERS Safety Report 9675928 (Version 1)
Quarter: 2013Q4

REPORT INFORMATION
  Report Type: Spontaneous
  Country: AR (occurrence: AR)
  Receive Date: 20131107
  Receipt Date: 20131107
  Transmission Date: 20140711
  Serious: Yes (Hospitalization, Other)
  Sender: FDA-Public Use
  Company Number: AR-AMGEN-ARGSP2013077511

PATIENT
  Sex: Female
  Weight: 64 kg

DRUGS (10)
  1. ENBREL [Suspect]
     Indication: ARTHRITIS
     Dosage: 50 MG, WEEKLY
     Route: 058
     Dates: start: 201106, end: 201211
  2. HYDROXYCHLOROQUINE [Concomitant]
     Dosage: UNK
     Dates: start: 2002
  3. SULFASALAZINE [Concomitant]
     Dosage: UNK
     Dates: start: 200811
  4. METHOTREXAT                        /00113801/ [Concomitant]
     Indication: DIARRHOEA
     Dosage: UNK
     Dates: start: 201011
  5. ATENOLOL [Concomitant]
     Indication: HYPERTENSION
     Dosage: 100 MG, 1X/DAY
  6. BISOPROLOL [Concomitant]
     Indication: HYPERTENSION
     Dosage: 5 MG, 1X/DAY
  7. HIDRENOX A                         /00999301/ [Concomitant]
     Indication: HYPERTENSION
     Dosage: 1 DF, 1X/DAY
  8. PREGABALIN [Concomitant]
     Dosage: 75 MG, 2X/DAY
     Dates: start: 201104
  9. CORBIS [Concomitant]
     Dosage: UNK
     Dates: start: 201106
  10. LOSARTAN [Concomitant]
     Dosage: UNK
     Dates: start: 201106

REACTIONS (5)
  - Angina unstable [Recovered/Resolved]
  - Cataract [Recovered/Resolved]
  - Arthritis [Unknown]
  - Eczema [Unknown]
  - Cardiac failure congestive [Recovered/Resolved]
